FAERS Safety Report 7435544-1 (Version None)
Quarter: 2011Q2

REPORT INFORMATION
  Report Type: 
  Country: None (occurrence: None)
  Receive Date: 20110425
  Receipt Date: 20110415
  Transmission Date: 20111010
  Serious: Yes (Hospitalization, Other)
  Sender: FDA-Public Use
  Company Number: JP-ELI_LILLY_AND_COMPANY-JP201104004814

PATIENT
  Sex: Female

DRUGS (1)
  1. BYETTA [Suspect]
     Dosage: UNK
     Route: 058
     Dates: start: 20110201

REACTIONS (5)
  - DIARRHOEA [None]
  - PYREXIA [None]
  - ARTERIOSCLEROSIS [None]
  - VOMITING [None]
  - HOSPITALISATION [None]
